FAERS Safety Report 21462363 (Version 3)
Quarter: 2022Q4

REPORT INFORMATION
  Report Type: Other
  Country: US (occurrence: None)
  Receive Date: 20221016
  Receipt Date: 20221020
  Transmission Date: 20230113
  Serious: Yes (Hospitalization, Other)
  Sender: FDA-Public Use
  Company Number: US-ROCHE-3073000

PATIENT
  Age: 78 Year
  Sex: Male
  Weight: 88.530 kg

DRUGS (19)
  1. CELLCEPT [Suspect]
     Active Substance: MYCOPHENOLATE MOFETIL
     Indication: Systemic sclerosis pulmonary
     Route: 048
  2. ACTEMRA [Suspect]
     Active Substance: TOCILIZUMAB
     Indication: Arthritis
     Route: 042
     Dates: start: 202207
  3. ACTEMRA [Suspect]
     Active Substance: TOCILIZUMAB
     Indication: Rheumatoid arthritis
  4. CELLCEPT [Suspect]
     Active Substance: MYCOPHENOLATE MOFETIL
     Indication: Pulmonary fibrosis
     Route: 048
  5. CELLCEPT [Suspect]
     Active Substance: MYCOPHENOLATE MOFETIL
     Indication: Scleroderma
  6. METOPROLOL SUCCINATE [Concomitant]
     Active Substance: METOPROLOL SUCCINATE
  7. NITROSTAT [Concomitant]
     Active Substance: NITROGLYCERIN
     Dosage: PLACE 1 TABLET BY SUBLINGUAL ROUTE AT THE FIRST SIGN OF ATTACK. REPEAT EVERY 5 MIN UNTIL RELIEF
  8. VITAMIN D3 [Concomitant]
     Active Substance: CHOLECALCIFEROL
     Dosage: TAKE 1 CAPSULE BY ORAL ROUTE EVERY WEEK
  9. PROLIA [Concomitant]
     Active Substance: DENOSUMAB
     Dosage: INJECT 1 MILLILITER BY SUBCUTANEOUS ROUTE EVERY 6 MONTHS IN THE UPPER ARM, UPPER THIGH OR ABDOMEN
  10. AMLODIPINE [Concomitant]
     Active Substance: AMLODIPINE BESYLATE
  11. ASPIRIN [Concomitant]
     Active Substance: ASPIRIN
     Dosage: TAKE 1 TABLET BY ORAL ROUTE
  12. FERRIC POLYSACCHARIDE COMPLEX [Concomitant]
     Active Substance: FERRIC POLYSACCHARIDE COMPLEX
     Dosage: 1 TABLET DAILY
  13. BACTRIM [Concomitant]
     Active Substance: SULFAMETHOXAZOLE\TRIMETHOPRIM
     Dosage: THREE TIMES A WEEK ON MONDAY, WEDNESDAY, FRIDAY OF 80-160MG
  14. EZETIMIBE\SIMVASTATIN [Concomitant]
     Active Substance: EZETIMIBE\SIMVASTATIN
     Dosage: 10/40MG
  15. ULTRACET [Concomitant]
     Active Substance: ACETAMINOPHEN\TRAMADOL HYDROCHLORIDE
     Dosage: 1 TO 2 TAB QPM PC
  16. PREDNISONE [Concomitant]
     Active Substance: PREDNISONE
  17. VITAMIN D2 [Concomitant]
     Active Substance: ERGOCALCIFEROL
  18. FINASTERIDE [Concomitant]
     Active Substance: FINASTERIDE
  19. FLUTICASONE PROPIONATE [Concomitant]
     Active Substance: FLUTICASONE PROPIONATE

REACTIONS (4)
  - Back pain [Unknown]
  - Off label use [Unknown]
  - Malignant neoplasm progression [Unknown]
  - COVID-19 pneumonia [Recovered/Resolved]
